FAERS Safety Report 18458605 (Version 1)
Quarter: 2020Q4

REPORT INFORMATION
  Report Type: Spontaneous
  Country: GB (occurrence: GB)
  Receive Date: 20201103
  Receipt Date: 20201103
  Transmission Date: 20210114
  Serious: Yes (Other)
  Sender: FDA-Public Use
  Company Number: GB-MYLANLABS-2020M1090754

PATIENT
  Age: 29 Year
  Sex: Female
  Weight: 62 kg

DRUGS (1)
  1. ZOLMITRIPTAN. [Suspect]
     Active Substance: ZOLMITRIPTAN
     Indication: MIGRAINE
     Dosage: 250 MICROGRAM/KILOGRAM
     Route: 048
     Dates: start: 20200925

REACTIONS (5)
  - Heart rate increased [Recovered/Resolved]
  - Emotional disorder [Recovering/Resolving]
  - Hypoaesthesia [Recovering/Resolving]
  - Pain in jaw [Recovered/Resolved]
  - Nausea [Not Recovered/Not Resolved]

NARRATIVE: CASE EVENT DATE: 20200925
